FAERS Safety Report 14244679 (Version 1)
Quarter: 2017Q4

REPORT INFORMATION
  Report Type: Spontaneous
  Country: US (occurrence: US)
  Receive Date: 20171201
  Receipt Date: 20171201
  Transmission Date: 20180321
  Serious: No
  Sender: FDA-Public Use
  Company Number: US-PERRIGO-17US002748

PATIENT
  Sex: Male
  Weight: 90.7 kg

DRUGS (3)
  1. TRIAMCINOLONE ACETONIDE. [Suspect]
     Active Substance: TRIAMCINOLONE ACETONIDE
     Dosage: 1 THIN LAYER, BID
     Route: 061
     Dates: start: 20170220, end: 20170226
  2. TRIAMCINOLONE ACETONIDE. [Suspect]
     Active Substance: TRIAMCINOLONE ACETONIDE
     Indication: MYCOSIS FUNGOIDES
     Dosage: 1 THIN LAYER, BID
     Route: 061
     Dates: start: 2012, end: 20170219
  3. TRIAMCINOLONE ACETONIDE. [Suspect]
     Active Substance: TRIAMCINOLONE ACETONIDE
     Dosage: 1 THIN LAYER, BID
     Route: 061
     Dates: start: 20170227

REACTIONS (2)
  - Application site pain [Recovered/Resolved]
  - Drug effect decreased [Unknown]

NARRATIVE: CASE EVENT DATE: 20170220
